FAERS Safety Report 7385955-8 (Version None)
Quarter: 2011Q1

REPORT INFORMATION
  Report Type: 
  Country: None (occurrence: None)
  Receive Date: 20110331
  Receipt Date: 20110323
  Transmission Date: 20110831
  Serious: Yes (Hospitalization)
  Sender: FDA-Public Use
  Company Number: CH-NOVOPROD-323159

PATIENT
  Age: 63 Year
  Sex: Male
  Weight: 82 kg

DRUGS (5)
  1. PANTOPRAZOL                        /01263202/ [Concomitant]
     Dosage: 40 MG, QD
     Route: 048
     Dates: start: 19950101
  2. SORTIS [Concomitant]
     Dosage: 20 MG, QD
     Route: 048
     Dates: start: 20030101
  3. NORDITROPIN [Suspect]
     Indication: PRODUCT USED FOR UNKNOWN INDICATION
     Dosage: UNK
     Route: 065
     Dates: end: 20110104
  4. NORDITROPIN NORDIFLEX [Suspect]
     Indication: GROWTH HORMONE DEFICIENCY
     Dosage: 0.25 MG, QD
     Route: 058
     Dates: start: 20070801
  5. ASPIRIN [Concomitant]
     Dosage: 100 MG, QD
     Route: 048
     Dates: start: 20030101, end: 20110106

REACTIONS (2)
  - WRONG DRUG ADMINISTERED [None]
  - PULMONARY EMBOLISM [None]
